FAERS Safety Report 8187423-2 (Version None)
Quarter: 2012Q1

REPORT INFORMATION
  Report Type: 
  Country: None (occurrence: None)
  Receive Date: 20120306
  Receipt Date: 20120220
  Transmission Date: 20120608
  Serious: Yes (Other)
  Sender: FDA-Public Use
  Company Number: FR-ROCHE-1045910

PATIENT

DRUGS (2)
  1. HEPARIN [Concomitant]
     Indication: ISCHAEMIC STROKE
  2. ALTEPLASE [Suspect]
     Indication: ISCHAEMIC STROKE
     Route: 042

REACTIONS (2)
  - CEREBELLAR ARTERY OCCLUSION [None]
  - CEREBELLAR INFARCTION [None]
